FAERS Safety Report 17575267 (Version 1)
Quarter: 2020Q1

REPORT INFORMATION
  Report Type: Spontaneous
  Country: ES (occurrence: ES)
  Receive Date: 20200324
  Receipt Date: 20200324
  Transmission Date: 20200409
  Serious: Yes (Other)
  Sender: FDA-Public Use
  Company Number: ES-AUROBINDO-AUR-APL-2020-015377

PATIENT
  Age: 72 Year
  Sex: Male

DRUGS (12)
  1. CLEVIDIPINE [Suspect]
     Active Substance: CLEVIDIPINE
     Indication: POSTOPERATIVE HYPERTENSION
     Dosage: UNK (2 MG/H)
     Route: 041
  2. ACENOCOUMAROL [Concomitant]
     Active Substance: ACENOCOUMAROL
     Indication: ATRIAL FIBRILLATION
     Dosage: UNK
     Route: 065
  3. CARVEDILOL. [Suspect]
     Active Substance: CARVEDILOL
     Indication: POSTOPERATIVE HYPERTENSION
     Dosage: 25 MILLIGRAM, ONCE A DAY
     Route: 065
  4. DOXAZOSIN [Suspect]
     Active Substance: DOXAZOSIN MESYLATE
     Indication: POSTOPERATIVE HYPERTENSION
     Dosage: 4 MILLIGRAM, TWO TIMES A DAY
     Route: 065
  5. LOSARTAN. [Suspect]
     Active Substance: LOSARTAN
     Indication: POSTOPERATIVE HYPERTENSION
     Dosage: 100 MILLIGRAM, ONCE A DAY
     Route: 065
  6. ATORVASTATIN [Concomitant]
     Active Substance: ATORVASTATIN
     Indication: DYSLIPIDAEMIA
     Dosage: UNK
     Route: 065
  7. CLEVIDIPINE [Suspect]
     Active Substance: CLEVIDIPINE
     Dosage: UNK (10 MG/H)
     Route: 065
  8. CARVEDILOL. [Concomitant]
     Active Substance: CARVEDILOL
     Indication: HYPERTENSION
     Dosage: UNK
  9. LABETALOL [Suspect]
     Active Substance: LABETALOL\LABETALOL HYDROCHLORIDE
     Indication: POSTOPERATIVE HYPERTENSION
     Dosage: UNK (15 MG/H)
     Route: 041
  10. ENALAPRIL [Concomitant]
     Active Substance: ENALAPRIL
     Indication: HYPERTENSION
     Dosage: 20 MILLIGRAM, ONCE A DAY
     Route: 065
  11. SPIRONOLACTONE. [Suspect]
     Active Substance: SPIRONOLACTONE
     Indication: POSTOPERATIVE HYPERTENSION
     Dosage: 25 MILLIGRAM, ONCE A DAY
     Route: 065
  12. HYDROCHLOROTHIAZIDE;OLMESARTAN [Concomitant]
     Indication: HYPERTENSION
     Dosage: UNK UNK, ONCE A DAY
     Route: 065

REACTIONS (1)
  - Blood triglycerides increased [Unknown]
